FAERS Safety Report 9881982 (Version 1)
Quarter: 2014Q1

REPORT INFORMATION
  Report Type: Spontaneous
  Country: US (occurrence: None)
  Receive Date: 20140205
  Receipt Date: 20140205
  Transmission Date: 20141002
  Serious: Yes (Death, Hospitalization)
  Sender: FDA-Public Use
  Company Number: DEP_01889_2014

PATIENT
  Age: 27 Year
  Sex: Male

DRUGS (4)
  1. GABAPENTIN [Suspect]
     Dosage: DF
  2. AMPHETAMINE [Suspect]
     Dosage: DF
  3. COCAINE [Suspect]
  4. MARIJUANA [Suspect]

REACTIONS (7)
  - Screaming [None]
  - Foaming at mouth [None]
  - Mydriasis [None]
  - Tachycardia [None]
  - Occult blood positive [None]
  - Drug abuse [None]
  - Toxicity to various agents [None]
